FAERS Safety Report 26145706 (Version 1)
Quarter: 2025Q4

REPORT INFORMATION
  Report Type: Report from Study
  Country: US (occurrence: US)
  Receive Date: 20251211
  Receipt Date: 20251211
  Transmission Date: 20260118
  Serious: Yes (Other)
  Sender: BIOCODEX
  Company Number: US-BIOCODEX2-2025001205

PATIENT
  Age: 15 Year
  Sex: Female
  Weight: 50.2 kg

DRUGS (12)
  1. DIACOMIT [Suspect]
     Active Substance: STIRIPENTOL
     Indication: Idiopathic generalised epilepsy
     Dosage: DAYS 1-7: TAKE 250MG (ONE OF THE 250MG CAPSULES) ONCE NIGHTLY
     Dates: start: 20230502, end: 20230508
  2. DIACOMIT [Suspect]
     Active Substance: STIRIPENTOL
     Dosage: DAYS 8 AND THEREAFTER: TAKE 250MG (ONE OF THE 250MG CAPSULES) TWICE DAILY
     Dates: start: 20230502
  3. DIACOMIT [Suspect]
     Active Substance: STIRIPENTOL
     Dosage: TAKE 250 MG BY MOUTH TWICE DAILY
     Dates: start: 20250723
  4. DIACOMIT [Suspect]
     Active Substance: STIRIPENTOL
  5. DIACOMIT [Suspect]
     Active Substance: STIRIPENTOL
  6. DIACOMIT [Suspect]
     Active Substance: STIRIPENTOL
  7. DEPAKOTE [Concomitant]
     Active Substance: DIVALPROEX SODIUM
     Indication: Product used for unknown indication
  8. DEPAKOTE [Concomitant]
     Active Substance: DIVALPROEX SODIUM
  9. KLONOPIN [Concomitant]
     Active Substance: CLONAZEPAM
     Indication: Product used for unknown indication
  10. KLONOPIN [Concomitant]
     Active Substance: CLONAZEPAM
  11. LEVOCARNITINE [Concomitant]
     Active Substance: LEVOCARNITINE
     Indication: Product used for unknown indication
  12. LEVOCARNITINE [Concomitant]
     Active Substance: LEVOCARNITINE

REACTIONS (3)
  - Inappropriate schedule of product administration [Unknown]
  - Off label use [Unknown]
  - Drug ineffective for unapproved indication [Unknown]

NARRATIVE: CASE EVENT DATE: 20230502
